FAERS Safety Report 5951794-5 (Version None)
Quarter: 2008Q4

REPORT INFORMATION
  Report Type: 
  Country: None (occurrence: None)
  Receive Date: 20081113
  Receipt Date: 20081110
  Transmission Date: 20090506
  Serious: Yes (Hospitalization)
  Sender: FDA-Public Use
  Company Number: A0737208A

PATIENT
  Age: 63 Year
  Sex: Male

DRUGS (17)
  1. AVANDIA [Suspect]
     Dosage: 8MG PER DAY
     Route: 048
     Dates: start: 20030101
  2. FUROSEMIDE [Concomitant]
  3. SPIRONOLACTONE [Concomitant]
  4. LIPITOR [Concomitant]
  5. FOLIC ACID [Concomitant]
  6. POLYSACCHARIDE-IRON COMPLEX [Concomitant]
  7. UNSPECIFIED MEDICATION [Concomitant]
  8. LANTUS [Concomitant]
  9. COREG [Concomitant]
  10. UNSPECIFIED MEDICATION [Concomitant]
  11. ISOSORBIDE DINITRATE [Concomitant]
  12. VITAMIN B [Concomitant]
  13. M.V.I. [Concomitant]
  14. ASACOL [Concomitant]
  15. KLOR-CON [Concomitant]
  16. LOPERAMIDE HCL [Concomitant]
  17. OPTIVAR OPTHALMIC SOLUTION [Concomitant]

REACTIONS (4)
  - EATING DISORDER [None]
  - FLUID RETENTION [None]
  - WEIGHT DECREASED [None]
  - WEIGHT INCREASED [None]
